FAERS Safety Report 4445942-6 (Version None)
Quarter: 2004Q3

REPORT INFORMATION
  Report Type: 
  Country: None (occurrence: None)
  Receive Date: 20040903
  Receipt Date: 20040825
  Transmission Date: 20050211
  Serious: Yes (Other)
  Sender: FDA-Public Use
  Company Number: 2004-08-1664

PATIENT
  Sex: Male

DRUGS (2)
  1. PEG-INTRON [Suspect]
     Dosage: SUBCUTANEOUS
     Route: 058
     Dates: start: 20020101, end: 20030101
  2. REBETOL [Suspect]
     Dosage: ORAL
     Route: 048
     Dates: start: 20020101, end: 20030101

REACTIONS (1)
  - AMNESIA [None]
